FAERS Safety Report 8539692-4 (Version None)
Quarter: 2012Q3

REPORT INFORMATION
  Report Type: 
  Country: None (occurrence: None)
  Receive Date: 20120726
  Receipt Date: 20111103
  Transmission Date: 20120928
  Serious: No
  Sender: FDA-Public Use
  Company Number: US-ASTRAZENECA-2010SE25496

PATIENT
  Age: 40 Year
  Sex: Female

DRUGS (1)
  1. SEROQUEL [Suspect]
     Indication: INSOMNIA
     Route: 048

REACTIONS (5)
  - WITHDRAWAL SYNDROME [None]
  - OFF LABEL USE [None]
  - DRUG DOSE OMISSION [None]
  - OROPHARYNGEAL PAIN [None]
  - INSOMNIA [None]
